FAERS Safety Report 15679480 (Version 2)
Quarter: 2018Q4

REPORT INFORMATION
  Report Type: Spontaneous
  Country: US (occurrence: US)
  Receive Date: 20181203
  Receipt Date: 20181217
  Transmission Date: 20190205
  Serious: Yes (Other)
  Sender: FDA-Public Use
  Company Number: US-ROCHE-2221179

PATIENT
  Sex: Female

DRUGS (2)
  1. OCREVUS [Suspect]
     Active Substance: OCRELIZUMAB
     Indication: PRIMARY PROGRESSIVE MULTIPLE SCLEROSIS
     Dosage: TWO WEEKS APART
     Route: 042
     Dates: start: 20170810
  2. OCREVUS [Suspect]
     Active Substance: OCRELIZUMAB
     Dosage: LAST DOSE
     Route: 042
     Dates: start: 20180810, end: 20180810

REACTIONS (4)
  - Arthralgia [Unknown]
  - Asthenia [Unknown]
  - Colitis microscopic [Unknown]
  - Peripheral swelling [Unknown]
